FAERS Safety Report 8100453-1 (Version None)
Quarter: 2012Q1

REPORT INFORMATION
  Report Type: 
  Country: None (occurrence: None)
  Receive Date: 20120129
  Receipt Date: 20111101
  Transmission Date: 20120608
  Serious: No
  Sender: FDA-Public Use
  Company Number: US-ABBOTT-11P-163-0870411-00

PATIENT
  Age: 55 Year
  Sex: Female

DRUGS (9)
  1. BYETTA [Concomitant]
     Indication: BLOOD GLUCOSE ABNORMAL
  2. METHOTREXATE [Concomitant]
     Indication: PRODUCT USED FOR UNKNOWN INDICATION
     Dosage: 8 TABLETS EVERY WEDNESDAY
  3. PREVACID [Concomitant]
     Indication: DYSPEPSIA
  4. MELOXICAM [Concomitant]
     Indication: PRODUCT USED FOR UNKNOWN INDICATION
  5. HUMIRA [Suspect]
     Indication: RHEUMATOID ARTHRITIS
     Dates: start: 20110728
  6. MV [Concomitant]
     Indication: PRODUCT USED FOR UNKNOWN INDICATION
  7. FLORID ACID [Concomitant]
     Indication: PRODUCT USED FOR UNKNOWN INDICATION
  8. METATHYROID [Concomitant]
     Indication: THYROID DISORDER
  9. VITAMIN D [Concomitant]
     Indication: PRODUCT USED FOR UNKNOWN INDICATION

REACTIONS (1)
  - TENSION HEADACHE [None]
